FAERS Safety Report 25851717 (Version 4)
Quarter: 2025Q4

REPORT INFORMATION
  Report Type: Spontaneous
  Country: CN (occurrence: CN)
  Receive Date: 20250926
  Receipt Date: 20251202
  Transmission Date: 20260118
  Serious: Yes (Other)
  Sender: OTSUKA
  Company Number: CN-MMM-Otsuka-MIFOJYPS

PATIENT
  Age: 13 Year
  Sex: Female
  Weight: 70 kg

DRUGS (6)
  1. ABILIFY [Suspect]
     Active Substance: ARIPIPRAZOLE
     Indication: Depression
     Dosage: 10 MG, QD (BETWEEN 8-8:30 PM)
     Route: 065
     Dates: start: 20250829
  2. ABILIFY [Suspect]
     Active Substance: ARIPIPRAZOLE
     Indication: Anxiety
     Dosage: 15 MG
     Route: 065
     Dates: start: 20250601, end: 20250826
  3. ABILIFY [Suspect]
     Active Substance: ARIPIPRAZOLE
     Indication: Self-injurious ideation
     Dosage: 7.5 MG (DOSE REDUCED)
     Route: 065
  4. ABILIFY [Suspect]
     Active Substance: ARIPIPRAZOLE
     Dosage: 8.75 MG (DOSE REDUCED)
     Route: 065
  5. LITHIUM [Concomitant]
     Active Substance: LITHIUM
     Indication: Product used for unknown indication
     Dosage: UNK
     Route: 065
  6. LORAZEPAM [Concomitant]
     Active Substance: LORAZEPAM
     Indication: Product used for unknown indication
     Dosage: UNK
     Route: 065

REACTIONS (24)
  - Hypothyroidism [Unknown]
  - Hallucination, auditory [Unknown]
  - Condition aggravated [Unknown]
  - High density lipoprotein decreased [Not Recovered/Not Resolved]
  - Self-injurious ideation [Not Recovered/Not Resolved]
  - Cold sweat [Recovering/Resolving]
  - Thinking abnormal [Recovering/Resolving]
  - Blood uric acid increased [Not Recovered/Not Resolved]
  - Sleep disorder [Recovering/Resolving]
  - Blood insulin increased [Not Recovered/Not Resolved]
  - Dyspnoea [Unknown]
  - Rash [Recovered/Resolved]
  - Aggression [Recovered/Resolved]
  - Musculoskeletal stiffness [Unknown]
  - Vomiting [Unknown]
  - Hypertension [Unknown]
  - Blood glucose increased [Unknown]
  - Tremor [Recovering/Resolving]
  - Nausea [Recovering/Resolving]
  - Weight increased [Unknown]
  - Restlessness [Unknown]
  - Dyskinesia [Unknown]
  - Akathisia [Not Recovered/Not Resolved]
  - Drug ineffective for unapproved indication [Unknown]

NARRATIVE: CASE EVENT DATE: 20250101
